FAERS Safety Report 23458429 (Version 1)
Quarter: 2024Q1

REPORT INFORMATION
  Report Type: Other
  Country: CZ (occurrence: CZ)
  Receive Date: 20240130
  Receipt Date: 20240130
  Transmission Date: 20240409
  Serious: Yes (Hospitalization)
  Sender: FDA-Public Use
  Company Number: CZ-BoehringerIngelheim-2024-BI-002817

PATIENT
  Age: 58 Year
  Sex: Male

DRUGS (2)
  1. ALTEPLASE [Suspect]
     Active Substance: ALTEPLASE
     Indication: Retinal artery occlusion
     Dosage: 0.9 MG/KG PER WEIGHT OF PATIENT (10 % AS BOLUS).
     Route: 042
  2. ALTEPLASE [Suspect]
     Active Substance: ALTEPLASE
     Indication: Cerebrovascular accident
     Dosage: (FOLLOWING 90 % OF DOSE VIA ONE HOUR LASTING INFUSION).
     Route: 042

REACTIONS (1)
  - Cerebral artery occlusion [Recovered/Resolved with Sequelae]
